FAERS Safety Report 5087387-4 (Version None)
Quarter: 2006Q3

REPORT INFORMATION
  Report Type: 
  Country: None (occurrence: None)
  Receive Date: 20060822
  Receipt Date: 20060822
  Transmission Date: 20061208
  Serious: Yes (Hospitalization)
  Sender: FDA-Public Use
  Company Number: None

PATIENT
  Age: 42 Year
  Sex: Male
  Weight: 93.441 kg

DRUGS (7)
  1. CISPLATIN [Suspect]
     Indication: SALIVARY GLAND NEOPLASM
     Dosage: 150 MG OVER 1.5 HRS EVERY 3-4 WEEKS IV
     Route: 042
     Dates: start: 20060424
  2. ATENOLOL [Concomitant]
  3. LISINOPRIL [Concomitant]
  4. COUMADIN [Concomitant]
  5. DEXAMETHASONE [Concomitant]
  6. METOCLOPRAMIDE [Concomitant]
  7. ZOFRAN [Concomitant]

REACTIONS (4)
  - BLOOD CREATININE DECREASED [None]
  - FEELING ABNORMAL [None]
  - ORAL INTAKE REDUCED [None]
  - WEIGHT DECREASED [None]
